FAERS Safety Report 17603918 (Version 1)
Quarter: 2020Q1

REPORT INFORMATION
  Report Type: Spontaneous
  Country: US (occurrence: US)
  Receive Date: 20200331
  Receipt Date: 20200331
  Transmission Date: 20200409
  Serious: No
  Sender: FDA-Public Use
  Company Number: US-MYLANLABS-2020M1033522

PATIENT
  Age: 48 Year
  Sex: Male

DRUGS (22)
  1. PAROXETINE. [Suspect]
     Active Substance: PAROXETINE
     Indication: PSYCHOTIC DISORDER
     Dosage: 10 MG ONCE DAILY
  2. LITHIUM CARBONATE. [Suspect]
     Active Substance: LITHIUM CARBONATE
     Indication: AFFECTIVE DISORDER
     Dosage: 250 MG AT FOUR PM
  3. CLOZAPINE. [Suspect]
     Active Substance: CLOZAPINE
     Indication: PSYCHOTIC DISORDER
  4. BUDESONIDE. [Suspect]
     Active Substance: BUDESONIDE
     Dosage: 3 DOSAGE FORM
     Route: 048
     Dates: start: 201904, end: 2019
  5. BUDESONIDE. [Suspect]
     Active Substance: BUDESONIDE
     Dosage: 9 MG BY MOUTH ONCE DAILY
     Route: 048
     Dates: start: 201905, end: 2019
  6. PENTASA [Suspect]
     Active Substance: MESALAMINE
     Indication: PRODUCT USED FOR UNKNOWN INDICATION
     Dosage: UNK
     Dates: start: 2018, end: 2018
  7. BUDESONIDE. [Suspect]
     Active Substance: BUDESONIDE
     Dosage: 9 MG BY MOUTH ONCE DAILY
     Route: 048
     Dates: start: 201905, end: 2019
  8. LITHIUM CARBONATE. [Suspect]
     Active Substance: LITHIUM CARBONATE
     Dosage: 250 MG AT EIGHT PM
  9. OMEPRAZOLE. [Suspect]
     Active Substance: OMEPRAZOLE
     Indication: GASTROOESOPHAGEAL REFLUX DISEASE
     Dosage: 20 MILLIGRAM, QD
  10. PREDNISONE. [Suspect]
     Active Substance: PREDNISONE
     Indication: PRODUCT USED FOR UNKNOWN INDICATION
     Dosage: UNK
  11. VALPROIC ACID. [Suspect]
     Active Substance: VALPROIC ACID
     Dosage: 250 MG AT FOUR PM
  12. OXCARBAZEPINE. [Suspect]
     Active Substance: OXCARBAZEPINE
     Indication: AFFECTIVE DISORDER
     Dosage: 75 MG AT NOON
  13. OXCARBAZEPINE. [Suspect]
     Active Substance: OXCARBAZEPINE
     Dosage: 75 MG AT FOUR PM
  14. CLOZAPINE. [Suspect]
     Active Substance: CLOZAPINE
     Indication: SCHIZOPHRENIA
     Dosage: 100 MILLIGRAM, QID
  15. VALPROIC ACID. [Suspect]
     Active Substance: VALPROIC ACID
     Dosage: 400 MG AT MIDNIGHT
  16. QUETIAPINE. [Suspect]
     Active Substance: QUETIAPINE
     Indication: AFFECTIVE DISORDER
     Dosage: 100 MG ONCE DAILY AT BEDTIME
  17. VALPROIC ACID. [Suspect]
     Active Substance: VALPROIC ACID
     Indication: AFFECTIVE DISORDER
     Dosage: 500 MG AT NOON
  18. OXCARBAZEPINE. [Suspect]
     Active Substance: OXCARBAZEPINE
     Dosage: 75 MG AT MIDNIGHT
  19. BUDESONIDE. [Suspect]
     Active Substance: BUDESONIDE
     Indication: CROHN^S DISEASE
     Dosage: 3 DOSAGE FORM, QD
     Route: 048
     Dates: start: 201812, end: 201901
  20. BUDESONIDE. [Suspect]
     Active Substance: BUDESONIDE
     Dosage: 6 MG BY MOUTH ONCE DAILY
     Route: 048
     Dates: start: 201905, end: 2019
  21. BUDESONIDE. [Suspect]
     Active Substance: BUDESONIDE
     Dosage: ONE CAPSULE EVERY OTHER DAY
     Route: 048
     Dates: start: 201905, end: 2019
  22. OXCARBAZEPINE. [Suspect]
     Active Substance: OXCARBAZEPINE
     Dosage: 75 MG AT EIGHT PM

REACTIONS (8)
  - Salivary hypersecretion [Unknown]
  - Drug ineffective [Unknown]
  - Withdrawal syndrome [Recovered/Resolved]
  - Asthenia [Recovered/Resolved]
  - Fall [Recovered/Resolved]
  - Psoriasis [Not Recovered/Not Resolved]
  - Product dose omission [Recovered/Resolved]
  - Dizziness [Recovered/Resolved]

NARRATIVE: CASE EVENT DATE: 201901
